FAERS Safety Report 6718299-5 (Version None)
Quarter: 2010Q2

REPORT INFORMATION
  Report Type: 
  Country: None (occurrence: None)
  Receive Date: 20100510
  Receipt Date: 20100504
  Transmission Date: 20101027
  Serious: Yes (Death)
  Sender: FDA-Public Use
  Company Number: US-AMGEN-KDC408147

PATIENT
  Sex: Male

DRUGS (1)
  1. ENBREL [Suspect]
     Indication: PSORIASIS
     Route: 058
     Dates: start: 20070327, end: 20080901

REACTIONS (2)
  - ASPHYXIA [None]
  - LUNG CARCINOMA CELL TYPE UNSPECIFIED STAGE IV [None]
